FAERS Safety Report 24567958 (Version 2)
Quarter: 2025Q1

REPORT INFORMATION
  Report Type: Spontaneous
  Country: FR (occurrence: FR)
  Receive Date: 20241031
  Receipt Date: 20250305
  Transmission Date: 20250409
  Serious: Yes (Hospitalization)
  Sender: ALEXION PHARMACEUTICALS
  Company Number: None

PATIENT
  Age: 78 Year
  Weight: 100 kg

DRUGS (2)
  1. IMFINZI [Suspect]
     Active Substance: DURVALUMAB
     Indication: Hepatocellular carcinoma
  2. IMJUDO [Suspect]
     Active Substance: TREMELIMUMAB\TREMELIMUMAB-ACTL
     Indication: Hepatocellular carcinoma

REACTIONS (2)
  - Dyspnoea [Recovered/Resolved]
  - Pleural effusion [Unknown]
